FAERS Safety Report 5877309-8 (Version None)
Quarter: 2008Q3

REPORT INFORMATION
  Report Type: 
  Country: None (occurrence: None)
  Receive Date: 20080908
  Receipt Date: 20080827
  Transmission Date: 20090109
  Serious: Yes (Hospitalization, Disabling)
  Sender: FDA-Public Use
  Company Number: RENA-1000209

PATIENT
  Age: 64 Year
  Sex: Female
  Weight: 51.5 kg

DRUGS (8)
  1. RENAGEL [Suspect]
     Indication: HYPERPHOSPHATAEMIA
     Dosage: 0.25G, TID, ORAL  0.5 G, TID, ORAL
     Dates: start: 20071023, end: 20080229
  2. RENAGEL [Suspect]
     Indication: HYPERPHOSPHATAEMIA
     Dosage: 0.25G, TID, ORAL  0.5 G, TID, ORAL
     Dates: start: 20080301, end: 20080503
  3. ADALAT L (NIFEDIPINE) TABLET [Concomitant]
  4. SELBEX (TEPRENONE) CAPSULE [Concomitant]
  5. DOXAZOSIN MESYLATE [Concomitant]
  6. FAMOTIDINE [Concomitant]
  7. LIPOVAS (SIMVASTATIN) TABLET [Concomitant]
  8. LASIX [Concomitant]

REACTIONS (3)
  - DIVERTICULITIS [None]
  - LARGE INTESTINE PERFORATION [None]
  - PERITONITIS [None]
